FAERS Safety Report 9541379 (Version 1)
Quarter: 2013Q2

REPORT INFORMATION
  Report Type: Spontaneous
  Country: US (occurrence: None)
  Receive Date: 20130524
  Receipt Date: 20130524
  Transmission Date: 20140414
  Serious: Yes (Other)
  Sender: FDA-Public Use
  Company Number: PHEH2013US003302

PATIENT
  Age: 54 Year
  Sex: Female

DRUGS (8)
  1. GILENYA [Suspect]
     Indication: MULTIPLE SCLEROSIS
     Route: 048
     Dates: start: 20130128
  2. VICODIN (HYDROCODONE BITARTRATE, PARACETAMOL) [Concomitant]
  3. LYRICA (PREGABALIN) [Concomitant]
  4. FENTANYL (FENTANYL) [Concomitant]
  5. TOPAMAX (TOPIRAMATE) [Concomitant]
  6. AMBIEN (ZOLPIDEM TARTRATE) [Concomitant]
  7. KLONOPIN (CLONAZEPAM) [Concomitant]
  8. HYDRAZINE (HYDRAZINE) [Concomitant]

REACTIONS (4)
  - Chills [None]
  - Fatigue [None]
  - Nausea [None]
  - Movement disorder [None]
